FAERS Safety Report 15525084 (Version 2)
Quarter: 2019Q1

REPORT INFORMATION
  Report Type: Spontaneous
  Country: US (occurrence: US)
  Receive Date: 20181018
  Receipt Date: 20190327
  Transmission Date: 20190417
  Serious: Yes (Hospitalization)
  Sender: FDA-Public Use
  Company Number: US-TEVA-2018-US-965531

PATIENT
  Sex: Female

DRUGS (1)
  1. AJOVY [Suspect]
     Active Substance: FREMANEZUMAB-VFRM
     Route: 058
     Dates: start: 20181006

REACTIONS (7)
  - Headache [Not Recovered/Not Resolved]
  - Phonophobia [Unknown]
  - Photophobia [Unknown]
  - Disorientation [Unknown]
  - Nausea [Unknown]
  - Suicidal ideation [Unknown]
  - Intrusive thoughts [Not Recovered/Not Resolved]

NARRATIVE: CASE EVENT DATE: 20181006
